FAERS Safety Report 10269064 (Version 1)
Quarter: 2014Q2

REPORT INFORMATION
  Report Type: Spontaneous
  Country: IT (occurrence: IT)
  Receive Date: 20140630
  Receipt Date: 20140630
  Transmission Date: 20141212
  Serious: Yes (Hospitalization)
  Sender: FDA-Public Use
  Company Number: PHHY2014IT077622

PATIENT
  Age: 45 Year
  Sex: Male

DRUGS (3)
  1. SOMATROPIN [Suspect]
     Indication: DRUG ABUSE
     Dosage: 4 IU, QD
     Route: 058
     Dates: start: 20140410, end: 20140610
  2. TESTONON [Suspect]
     Indication: DRUG ABUSE
     Dosage: 300 MG, QW
     Route: 030
     Dates: start: 20140510, end: 20140610
  3. NANDROLONE [Suspect]
     Indication: DRUG ABUSE
     Dosage: 200 MG, QD
     Route: 030

REACTIONS (2)
  - Ventricular hypertrophy [Not Recovered/Not Resolved]
  - Drug abuse [Not Recovered/Not Resolved]
